FAERS Safety Report 9724665 (Version 1)
Quarter: 2013Q4

REPORT INFORMATION
  Report Type: Spontaneous
  Country: GB (occurrence: GB)
  Receive Date: 20131202
  Receipt Date: 20131202
  Transmission Date: 20140711
  Serious: Yes (Other)
  Sender: FDA-Public Use
  Company Number: GB-MYLANLABS-2013S1026014

PATIENT
  Sex: 0

DRUGS (1)
  1. AMLODIPINE [Suspect]
     Indication: BLOOD PRESSURE SYSTOLIC INCREASED

REACTIONS (3)
  - Adverse drug reaction [Unknown]
  - Blood pressure increased [Recovered/Resolved]
  - Product quality issue [Unknown]
